FAERS Safety Report 6388326-6 (Version None)
Quarter: 2009Q4

REPORT INFORMATION
  Report Type: 
  Country: None (occurrence: None)
  Receive Date: 20091005
  Receipt Date: 20090925
  Transmission Date: 20100525
  Serious: Yes (Disabling)
  Sender: FDA-Public Use
  Company Number: US-MERCK-0909USA04215

PATIENT
  Age: 76 Year
  Sex: Female

DRUGS (11)
  1. ZOCOR [Suspect]
     Indication: BLOOD CHOLESTEROL INCREASED
     Route: 048
     Dates: end: 20090901
  2. SYNTHROID [Concomitant]
     Route: 065
  3. COZAAR [Concomitant]
     Route: 048
  4. CELEBREX [Concomitant]
     Route: 065
  5. POTASSIUM CHLORIDE [Concomitant]
     Route: 065
  6. NEXIUM [Concomitant]
     Route: 065
  7. TORSEMIDE [Concomitant]
     Route: 065
  8. DILTIAZEM HYDROCHLORIDE [Concomitant]
     Route: 065
  9. CALCIUM (UNSPECIFIED) [Concomitant]
     Route: 065
  10. ZETIA [Concomitant]
     Route: 048
  11. MAGNESIUM OXIDE [Concomitant]
     Route: 065

REACTIONS (3)
  - ABASIA [None]
  - ARTHRALGIA [None]
  - BONE PAIN [None]
